FAERS Safety Report 18101258 (Version 1)
Quarter: 2020Q3

REPORT INFORMATION
  Report Type: Spontaneous
  Country: US (occurrence: US)
  Receive Date: 20200801
  Receipt Date: 20200801
  Transmission Date: 20201103
  Serious: Yes (Disabling)
  Sender: FDA-Public Use
  Company Number: US-CADILA HEALTHCARE LIMITED-US-ZYDUS-053971

PATIENT
  Sex: Male

DRUGS (1)
  1. HALOPERIDOL 5 MILLIGRAM TABLET [Suspect]
     Active Substance: HALOPERIDOL
     Indication: PRODUCT USED FOR UNKNOWN INDICATION

REACTIONS (5)
  - Eye disorder [Unknown]
  - Feeding disorder [Unknown]
  - Dysstasia [Unknown]
  - Enuresis [Unknown]
  - Aphasia [Unknown]
